FAERS Safety Report 9412435 (Version 1)
Quarter: 2013Q3

REPORT INFORMATION
  Report Type: Spontaneous
  Country: RU (occurrence: RU)
  Receive Date: 20130722
  Receipt Date: 20130722
  Transmission Date: 20140515
  Serious: Yes (Hospitalization, Other)
  Sender: FDA-Public Use
  Company Number: RU-US-EMD SERONO, INC.-7223744

PATIENT
  Sex: Female

DRUGS (2)
  1. GONAL-F [Suspect]
     Indication: PRODUCT USED FOR UNKNOWN INDICATION
  2. OVITRELLE [Suspect]
     Indication: PRODUCT USED FOR UNKNOWN INDICATION
     Dates: start: 201302

REACTIONS (4)
  - Chronic tonsillitis [Unknown]
  - Bronchitis [Unknown]
  - Foetal death [Unknown]
  - Drug ineffective [Unknown]
